FAERS Safety Report 18756897 (Version 10)
Quarter: 2022Q2

REPORT INFORMATION
  Report Type: Report from Study
  Country: CA (occurrence: CA)
  Receive Date: 20210119
  Receipt Date: 20220613
  Transmission Date: 20220720
  Serious: Yes (Life-Threatening, Other)
  Sender: FDA-Public Use
  Company Number: CA-MYLANLABS-2021M1002258

PATIENT
  Age: 66 Year
  Sex: Male
  Weight: 70 kg

DRUGS (18)
  1. EPINEPHRINE [Interacting]
     Active Substance: EPINEPHRINE
     Indication: Anaphylactic reaction
     Dosage: UNK
  2. PREDNISONE [Interacting]
     Active Substance: PREDNISONE
     Indication: Asthma
     Dosage: UNK
     Route: 048
  3. PREVNAR 13 [Interacting]
     Active Substance: PNEUMOCOCCAL 13-VALENT CONJUGATE VACCINE
     Indication: Pneumococcal immunisation
     Dosage: 0.5 MILLILITER, TOTAL
     Route: 030
  4. PREVNAR 13 [Interacting]
     Active Substance: PNEUMOCOCCAL 13-VALENT CONJUGATE VACCINE
     Indication: Immunisation
  5. UMECLIDINIUM BROMIDE [Interacting]
     Active Substance: UMECLIDINIUM BROMIDE
     Indication: Product used for unknown indication
     Dosage: 1 DOSAGE FORM
  6. UMECLIDINIUM BROMIDE [Interacting]
     Active Substance: UMECLIDINIUM BROMIDE
     Dosage: 1 GRAM
  7. UMECLIDINIUM BROMIDE [Interacting]
     Active Substance: UMECLIDINIUM BROMIDE
     Dosage: UNK
     Route: 030
  8. BUDESONIDE [Interacting]
     Active Substance: BUDESONIDE
     Indication: Product used for unknown indication
     Dosage: UNK
  9. XOLAIR [Interacting]
     Active Substance: OMALIZUMAB
     Indication: Product used for unknown indication
     Dosage: UNK
  10. APIXABAN [Suspect]
     Active Substance: APIXABAN
     Indication: Product used for unknown indication
     Dosage: 1 DOSAGE FORM
  11. ALBUTEROL [Interacting]
     Active Substance: ALBUTEROL
     Indication: Product used for unknown indication
     Dosage: 100 MICROGRAM
  12. ALBUTEROL [Interacting]
     Active Substance: ALBUTEROL
     Dosage: 100 MILLIGRAM
  13. ALBUTEROL [Interacting]
     Active Substance: ALBUTEROL
     Dosage: UNK
     Route: 030
  14. NUCALA [Suspect]
     Active Substance: MEPOLIZUMAB
     Indication: Asthma
     Dosage: 100 MILLIGRAM
  15. UMECLIDINIUM BROMIDE\VILANTEROL TRIFENATATE [Suspect]
     Active Substance: UMECLIDINIUM BROMIDE\VILANTEROL TRIFENATATE
     Indication: Product used for unknown indication
     Dosage: 1 DOSAGE FORM
  16. OMALIZUMAB [Interacting]
     Active Substance: OMALIZUMAB
     Indication: Product used for unknown indication
     Dosage: UNK
  17. ELIQUIS [Suspect]
     Active Substance: APIXABAN
     Indication: Product used for unknown indication
     Dosage: 1 DOSAGE FORM
  18. PNEUMOCOCCAL 13-VALENT CONJUGATE VACCINE [Suspect]
     Active Substance: PNEUMOCOCCAL 13-VALENT CONJUGATE VACCINE
     Indication: Immunisation
     Dosage: 5 MILLILITER
     Route: 030

REACTIONS (10)
  - Drug ineffective [Unknown]
  - Acquired factor V deficiency [Unknown]
  - Asthma [Unknown]
  - Bronchopulmonary aspergillosis allergic [Unknown]
  - Chronic obstructive pulmonary disease [Unknown]
  - Loss of personal independence in daily activities [Unknown]
  - Dyspnoea [Unknown]
  - Multiple allergies [Unknown]
  - Drug interaction [Unknown]
  - Therapeutic product effect incomplete [Unknown]
